FAERS Safety Report 18653582 (Version 36)
Quarter: 2025Q1

REPORT INFORMATION
  Report Type: Report from Study
  Country: US (occurrence: US)
  Receive Date: 20201223
  Receipt Date: 20250210
  Transmission Date: 20250409
  Serious: Yes (Hospitalization, Other)
  Sender: TAKEDA
  Company Number: US-TAKEDA-US202005399

PATIENT
  Sex: Male

DRUGS (4)
  1. HUMAN IMMUNOGLOBULIN G [Suspect]
     Active Substance: HUMAN IMMUNOGLOBULIN G
     Indication: Hypogammaglobulinaemia
     Dosage: 35 GRAM, MONTHLY
  2. HUMAN IMMUNOGLOBULIN G [Suspect]
     Active Substance: HUMAN IMMUNOGLOBULIN G
     Indication: Bruton^s agammaglobulinaemia
     Dosage: 35 GRAM, MONTHLY
  3. HUMAN IMMUNOGLOBULIN G [Suspect]
     Active Substance: HUMAN IMMUNOGLOBULIN G
     Indication: Primary immunodeficiency syndrome
     Dosage: UNK UNK, MONTHLY
  4. COVID-19 VACCINE NOS [Suspect]
     Active Substance: COVID-19 VACCINE
     Indication: COVID-19 immunisation

REACTIONS (42)
  - Lipoma [Unknown]
  - Incision site pain [Recovered/Resolved]
  - Cataract [Unknown]
  - Oropharyngeal pain [Unknown]
  - Product use in unapproved indication [Unknown]
  - Gastroenteritis viral [Unknown]
  - Limb injury [Unknown]
  - Photopsia [Unknown]
  - Night blindness [Unknown]
  - Tooth disorder [Unknown]
  - Blood immunoglobulin G decreased [Unknown]
  - Illness [Unknown]
  - Dehydration [Unknown]
  - Glare [Unknown]
  - Sinus disorder [Not Recovered/Not Resolved]
  - Immunisation reaction [Unknown]
  - Fall [Unknown]
  - Obstruction [Unknown]
  - Oral disorder [Unknown]
  - Sinus congestion [Unknown]
  - Joint noise [Unknown]
  - Ear infection [Unknown]
  - Arthropod sting [Unknown]
  - Infection [Unknown]
  - Nasopharyngitis [Recovering/Resolving]
  - Paranasal sinus discomfort [Unknown]
  - Inappropriate schedule of product administration [Unknown]
  - Incision site swelling [Unknown]
  - Ear congestion [Unknown]
  - Upper-airway cough syndrome [Unknown]
  - Sinusitis [Recovering/Resolving]
  - Feeling abnormal [Unknown]
  - Injection site pain [Unknown]
  - Wheezing [Unknown]
  - Influenza like illness [Unknown]
  - Malaise [Unknown]
  - Back pain [Unknown]
  - Arthralgia [Unknown]
  - Pain in extremity [Not Recovered/Not Resolved]
  - Dyspnoea [Unknown]
  - Fatigue [Unknown]
  - Headache [Unknown]
